FAERS Safety Report 4469971-1 (Version None)
Quarter: 2004Q3

REPORT INFORMATION
  Report Type: 
  Country: None (occurrence: None)
  Receive Date: 20040920
  Receipt Date: 20040709
  Transmission Date: 20050211
  Serious: No
  Sender: FDA-Public Use
  Company Number: A-US2004-06779

PATIENT
  Age: 75 Year
  Sex: Female

DRUGS (6)
  1. TRACLEER [Suspect]
     Indication: PULMONARY HYPERTENSION
     Dosage: 125 MG, BID, ORAL
     Route: 048
  2. WARFARIN (WARFARIN) [Concomitant]
  3. DILTIAZEM [Concomitant]
  4. CALCIUM (CALCIUM0 [Concomitant]
  5. MULTIVITAMIN [Concomitant]
  6. ESATENOLOL [Concomitant]

REACTIONS (1)
  - ARTHRALGIA [None]
